FAERS Safety Report 24432412 (Version 3)
Quarter: 2025Q3

REPORT INFORMATION
  Report Type: Spontaneous
  Country: US (occurrence: US)
  Receive Date: 20241014
  Receipt Date: 20250810
  Transmission Date: 20251020
  Serious: No
  Sender: ALEXION PHARMACEUTICALS
  Company Number: US-AstraZeneca-CH-00717535A

PATIENT
  Sex: Male
  Weight: 96 kg

DRUGS (1)
  1. STRENSIQ [Suspect]
     Active Substance: ASFOTASE ALFA
     Dosage: 1.6 MILLIGRAM, TIW
     Route: 065
     Dates: start: 20170102

REACTIONS (2)
  - Off label use [Unknown]
  - Weight increased [Unknown]
